FAERS Safety Report 24789464 (Version 1)
Quarter: 2024Q4

REPORT INFORMATION
  Report Type: Other
  Country: PE (occurrence: PE)
  Receive Date: 20241230
  Receipt Date: 20241230
  Transmission Date: 20250115
  Serious: Yes (Life-Threatening)
  Sender: B BRAUN
  Company Number: PE-B.Braun Medical Inc.-2168021

PATIENT
  Age: 64 Year
  Sex: Female

DRUGS (7)
  1. METRONIDAZOLE [Suspect]
     Active Substance: METRONIDAZOLE
     Indication: Megacolon
  2. VANCOMYCIN [Suspect]
     Active Substance: VANCOMYCIN
  3. Intravenous ?hydration [Concomitant]
  4. AZATHIOPRINE [Concomitant]
     Active Substance: AZATHIOPRINE
  5. CORTICOSTEROID NOS [Concomitant]
     Active Substance: CORTICOSTEROID NOS
  6. MEROPENEM [Concomitant]
     Active Substance: MEROPENEM
  7. LEVOTHYROXINE [Concomitant]
     Active Substance: LEVOTHYROXINE

REACTIONS (1)
  - Drug ineffective [Unknown]
